FAERS Safety Report 8210189-4 (Version None)
Quarter: 2012Q1

REPORT INFORMATION
  Report Type: 
  Country: None (occurrence: None)
  Receive Date: 20120314
  Receipt Date: 20111201
  Transmission Date: 20120608
  Serious: No
  Sender: FDA-Public Use
  Company Number: US-ASTRAZENECA-2008UW17574

PATIENT
  Age: 65 Year
  Sex: Female
  Weight: 81.6 kg

DRUGS (6)
  1. TOPROL-XL [Suspect]
     Route: 048
  2. VIVELLE [Concomitant]
  3. TOPROL-XL [Suspect]
     Indication: ADRENAL DISORDER
     Route: 048
     Dates: start: 20060101
  4. TYLENOL ARTHRITIS [Concomitant]
  5. NAPROXEN SODIUM [Concomitant]
  6. ZANTAC [Concomitant]

REACTIONS (6)
  - NASAL DRYNESS [None]
  - DRY MOUTH [None]
  - SINUS DISORDER [None]
  - DRUG INEFFECTIVE FOR UNAPPROVED INDICATION [None]
  - DRY EYE [None]
  - OFF LABEL USE [None]
